FAERS Safety Report 9068400 (Version 2)
Quarter: 2013Q1

REPORT INFORMATION
  Report Type: Spontaneous
  Country: US (occurrence: US)
  Receive Date: 20130206
  Receipt Date: 20130313
  Transmission Date: 20140127
  Serious: No
  Sender: FDA-Public Use
  Company Number: US-009507513-1301USA013364

PATIENT
  Age: 58 Year
  Sex: Female
  Weight: 68.27 kg

DRUGS (8)
  1. CLARITIN [Suspect]
     Indication: HYPERSENSITIVITY
     Dosage: 10 MG, ONCE
     Route: 048
     Dates: start: 20130124, end: 20130124
  2. CLARITIN [Suspect]
     Indication: MEDICAL OBSERVATION
  3. SAMBUCOL ORIGINAL LIQUID [Concomitant]
     Indication: HYPERSENSITIVITY
     Dosage: UNK, UNKNOWN
  4. VICKS NYQUIL (OLD FORMULA) [Concomitant]
     Indication: VIRAL INFECTION
     Dosage: UNK, UNKNOWN
  5. AMOXICILLIN [Concomitant]
     Indication: BACTERIAL INFECTION
     Dosage: UNK, UNKNOWN
  6. NASONEX [Concomitant]
     Indication: HYPERSENSITIVITY
     Dosage: UNK, UNKNOWN
  7. VIVELLE-DOT [Concomitant]
     Indication: HORMONE REPLACEMENT THERAPY
     Dosage: UNK, UNKNOWN
     Dates: start: 2009
  8. PROMETRIUM [Concomitant]
     Indication: HORMONE REPLACEMENT THERAPY
     Dosage: UNK, UNKNOWN
     Dates: start: 2009

REACTIONS (1)
  - Drug ineffective [Unknown]
